FAERS Safety Report 9241118 (Version 1)
Quarter: 2013Q1

REPORT INFORMATION
  Report Type: Spontaneous
  Country: US (occurrence: None)
  Receive Date: 20121120
  Receipt Date: 20121120
  Transmission Date: 20140127
  Serious: No
  Sender: FDA-Public Use
  Company Number: 1000038441

PATIENT
  Age: 48 Year
  Sex: Male

DRUGS (15)
  1. VIIBRYD [Suspect]
     Indication: DEPRESSION
  2. ASA (ACTYLSALICYLIC ACID) [Concomitant]
  3. ACTOSE (PIOGLITAZONE HYDROCHLORIDE) [Concomitant]
  4. METFORMIN (METFORMIN) [Concomitant]
  5. GLIPIZIDE (GLIPIZIDE) [Concomitant]
  6. JANUVIA (SITAGLIPTIN PHOSPHATE) [Concomitant]
  7. GABAPENTIN (GABAPENTIN) [Concomitant]
  8. LISINOPRIL [Concomitant]
  9. PRAVASTATIN [Concomitant]
  10. TAMSULOSIN [Concomitant]
  11. AMLODIPINE [Concomitant]
  12. BACLOFEN (BACLOFEN) [Concomitant]
  13. OXYCONTIN (OXYCODONE HYDROCHLORIDE) [Concomitant]
  14. HYDROCODONE (HYDROCODONE, ACETAMINOPHEN) [Concomitant]
  15. LORAZEPAM [Concomitant]

REACTIONS (4)
  - Feeling jittery [None]
  - Tremor [None]
  - Dyskinesia [None]
  - Vision blurred [None]
